FAERS Safety Report 7703309-9 (Version None)
Quarter: 2011Q3

REPORT INFORMATION
  Report Type: 
  Country: None (occurrence: None)
  Receive Date: 20110823
  Receipt Date: 20110811
  Transmission Date: 20111222
  Serious: Yes (Death)
  Sender: FDA-Public Use
  Company Number: US-ELI_LILLY_AND_COMPANY-US201108003905

PATIENT
  Age: 37 Year
  Sex: Male

DRUGS (5)
  1. CYMBALTA [Suspect]
     Dosage: 30 UNK, UNK
  2. CYMBALTA [Suspect]
     Dosage: 60 UNK, UNK
  3. CYMBALTA [Suspect]
     Dosage: 30 MG, UNK
  4. CYMBALTA [Suspect]
     Dosage: 30 MG, UNK
  5. CYMBALTA [Suspect]
     Dosage: 60 MG, UNK

REACTIONS (1)
  - DEATH [None]
